FAERS Safety Report 6067493-8 (Version None)
Quarter: 2009Q1

REPORT INFORMATION
  Report Type: 
  Country: None (occurrence: None)
  Receive Date: 20090121
  Receipt Date: 20080306
  Transmission Date: 20090719
  Serious: Yes (Other)
  Sender: FDA-Public Use
  Company Number: HQWYE082213AUG03

PATIENT
  Age: 61 Year
  Sex: Female
  Weight: 59.02 kg

DRUGS (9)
  1. PREMPRO [Suspect]
     Indication: HOT FLUSH
     Dosage: ORAL
     Route: 048
     Dates: end: 19950101
  2. PREMPRO [Suspect]
     Indication: VULVOVAGINAL DRYNESS
     Dosage: ORAL
     Route: 048
     Dates: end: 19950101
  3. ESTRACE [Suspect]
     Dosage: ORAL
     Route: 048
     Dates: start: 19930103, end: 19950401
  4. PREMARIN [Suspect]
     Dosage: 0.625MG DAYS 1 THRU 25, ORAL
     Route: 048
     Dates: start: 19880705, end: 19930901
  5. PROVERA [Suspect]
     Dosage: 10MG DAYS 16-25 DECREASED TO 2.5MG, ORAL
     Route: 048
     Dates: start: 19880705, end: 19941006
  6. TENORMIN [Concomitant]
  7. HYDROCHLOROTHIAZIDE [Concomitant]
  8. LISINOPRIL [Concomitant]
  9. NIACIN (NICOTINIC ACID0 [Concomitant]

REACTIONS (1)
  - BREAST CANCER [None]
